FAERS Safety Report 5032335-6 (Version None)
Quarter: 2006Q2

REPORT INFORMATION
  Report Type: 
  Country: None (occurrence: None)
  Receive Date: 20060508
  Receipt Date: 20051107
  Transmission Date: 20061013
  Serious: Yes (Hospitalization)
  Sender: FDA-Public Use
  Company Number: 230277M05USA

PATIENT
  Age: 39 Year
  Sex: Male

DRUGS (4)
  1. REBIF [Suspect]
     Indication: MULTIPLE SCLEROSIS
     Dosage: 44 MCG, 3 IN 1 WEEKS, SUBCUTANEOUS
     Route: 058
     Dates: start: 20050501
  2. PAMELOR [Concomitant]
  3. LYRICA [Concomitant]
  4. DITROPAN XL (OXYBUTYNIN /00538901/) [Concomitant]

REACTIONS (5)
  - INJECTION SITE ERYTHEMA [None]
  - INJECTION SITE NECROSIS [None]
  - INJECTION SITE THROMBOSIS [None]
  - INJECTION SITE ULCER [None]
  - MULTIPLE SCLEROSIS RELAPSE [None]
